FAERS Safety Report 5708189-9 (Version None)
Quarter: 2008Q2

REPORT INFORMATION
  Report Type: 
  Country: None (occurrence: None)
  Receive Date: 20080417
  Receipt Date: 20080406
  Transmission Date: 20081010
  Serious: Yes (Other)
  Sender: FDA-Public Use
  Company Number: US-BAYER-200811437BCC

PATIENT
  Sex: Male

DRUGS (1)
  1. 8-HOUR BAYER [Suspect]
     Indication: DRUG USE FOR UNKNOWN INDICATION
     Dosage: TOTAL DAILY DOSE: 1 DF  UNIT DOSE: 1 DF
     Route: 048

REACTIONS (1)
  - LUNG TRANSPLANT [None]
